FAERS Safety Report 15826884 (Version 1)
Quarter: 2019Q1

REPORT INFORMATION
  Report Type: Spontaneous
  Country: DE (occurrence: DE)
  Receive Date: 20190115
  Receipt Date: 20190115
  Transmission Date: 20190417
  Serious: Yes (Hospitalization, Other)
  Sender: FDA-Public Use
  Company Number: DE-MYLANLABS-2019M1002749

PATIENT
  Age: 83 Year
  Sex: Male

DRUGS (14)
  1. SIMVASTATIN. [Concomitant]
     Active Substance: SIMVASTATIN
     Dosage: 20 MILLIGRAM, QD
     Route: 048
  2. PIPAMPERONE [Concomitant]
     Active Substance: PIPAMPERONE
     Dosage: 30 MILLIGRAM, QD
     Route: 048
     Dates: start: 20180306
  3. RISPERIDONE. [Suspect]
     Active Substance: RISPERIDONE
     Indication: RESTLESSNESS
     Dosage: 0.5 MILLIGRAM, QD
     Route: 048
     Dates: start: 20180303
  4. PANTOPRAZOL                        /01263201/ [Concomitant]
     Active Substance: PANTOPRAZOLE
     Dosage: 20 MILLIGRAM, QD
     Route: 048
  5. MELPERON [Interacting]
     Active Substance: MELPERONE
     Indication: RESTLESSNESS
     Dosage: 25 MILLIGRAM, QD
     Route: 048
     Dates: start: 20180303, end: 20180303
  6. TORASEMID [Concomitant]
     Active Substance: TORSEMIDE
     Dosage: 10 MILLIGRAM, QD
     Route: 048
  7. RAMIPRIL. [Concomitant]
     Active Substance: RAMIPRIL
     Dosage: 10 MILLIGRAM, QD
     Route: 048
  8. TARGIN [Concomitant]
     Active Substance: NALOXONE HYDROCHLORIDE\OXYCODONE HYDROCHLORIDE
     Dosage: 20 MILLIGRAM, QD
     Route: 048
  9. L-THYROXIN                         /00068002/ [Concomitant]
     Active Substance: LEVOTHYROXINE SODIUM
     Dosage: 75 MICROGRAM, QD
     Route: 048
  10. MELPERON [Interacting]
     Active Substance: MELPERONE
     Indication: DELUSION
     Dosage: 50 MILLIGRAM, QD
     Route: 048
     Dates: start: 20180304, end: 20180305
  11. PIPAMPERONE [Concomitant]
     Active Substance: PIPAMPERONE
     Dosage: 80 MILLIGRAM, QD
     Route: 048
     Dates: start: 20180302, end: 201803
  12. RISPERIDONE. [Interacting]
     Active Substance: RISPERIDONE
     Indication: DELUSION
  13. ASPIRIN. [Concomitant]
     Active Substance: ASPIRIN
     Dosage: 100 MILLIGRAM, QD
     Route: 048
  14. MOLSIDOMIN [Concomitant]
     Active Substance: MOLSIDOMINE
     Dosage: 8 MILLIGRAM, QD
     Route: 048

REACTIONS (2)
  - Drug interaction [Unknown]
  - Pleurothotonus [Recovered/Resolved]

NARRATIVE: CASE EVENT DATE: 2018
